FAERS Safety Report 21245893 (Version 3)
Quarter: 2022Q3

REPORT INFORMATION
  Report Type: Report from Study
  Country: BR (occurrence: BR)
  Receive Date: 20220824
  Receipt Date: 20220902
  Transmission Date: 20221027
  Serious: Yes (Death, Life-Threatening, Hospitalization, Other)
  Sender: FDA-Public Use
  Company Number: BR-BRISTOL-MYERS SQUIBB COMPANY-2022-024224

PATIENT
  Age: 59 Year
  Sex: Female
  Weight: 67.7 kg

DRUGS (9)
  1. AZACITIDINE [Suspect]
     Active Substance: AZACITIDINE
     Indication: Myelodysplastic syndrome
     Dosage: 7 DAYS WITHIN 9 CALENDAR DAYS, PER CYCLE=28DAYS (75 MG/M2,1 IN 1 D)
     Route: 058
     Dates: start: 20220314, end: 20220419
  2. VENETOCLAX [Suspect]
     Active Substance: VENETOCLAX
     Indication: Myelodysplastic syndrome
     Dosage: DAY 1-14 OF EACH 28-DAY CYCLE (1 IN 1D)
     Route: 048
     Dates: start: 20220314, end: 20220424
  3. ATENOLOL [Concomitant]
     Active Substance: ATENOLOL
     Indication: Tachyarrhythmia
     Route: 002
  4. ATENOLOL [Concomitant]
     Active Substance: ATENOLOL
     Route: 002
     Dates: start: 2020, end: 20220428
  5. FUROSEMIDE [Concomitant]
     Active Substance: FUROSEMIDE
     Indication: Pulmonary congestion
     Route: 002
     Dates: start: 202107, end: 20220428
  6. PANTOPRAZOLE [Concomitant]
     Active Substance: PANTOPRAZOLE
     Indication: Gastritis
     Dosage: 1 IN 1 D
     Dates: start: 20210701, end: 20220428
  7. DEFERASIROX [Concomitant]
     Active Substance: DEFERASIROX
     Indication: Iron overload
     Dosage: 1 IN 1 D
     Route: 002
     Dates: start: 20210201, end: 20220428
  8. LEVOFLOXACIN [Concomitant]
     Active Substance: LEVOFLOXACIN
     Indication: Prophylaxis
     Dosage: 1 IN 1 D
     Dates: start: 20220330, end: 20220428
  9. EPOETIN ALFA [Concomitant]
     Active Substance: ERYTHROPOIETIN
     Indication: Anaemia
     Route: 058
     Dates: start: 2020, end: 20220428

REACTIONS (3)
  - Cardio-respiratory arrest [Fatal]
  - Sinusitis [Fatal]
  - Subarachnoid haemorrhage [Unknown]

NARRATIVE: CASE EVENT DATE: 20220409
